FAERS Safety Report 7910574-1 (Version None)
Quarter: 2011Q4

REPORT INFORMATION
  Report Type: 
  Country: None (occurrence: None)
  Receive Date: 20111111
  Receipt Date: 20111108
  Transmission Date: 20120403
  Serious: Yes (Other)
  Sender: FDA-Public Use
  Company Number: PHHY2011DK82306

PATIENT
  Sex: Female

DRUGS (2)
  1. TEGRETOL [Suspect]
     Dosage: 800 MG,D
     Route: 048
  2. VALPROATE SODIUM [Suspect]
     Dosage: 900 MG D
     Route: 048

REACTIONS (5)
  - PREMATURE LABOUR [None]
  - THROMBOCYTOPENIA [None]
  - MATERNAL EXPOSURE DURING PREGNANCY [None]
  - INTRA-UTERINE DEATH [None]
  - PREMATURE SEPARATION OF PLACENTA [None]
